FAERS Safety Report 21831350 (Version 3)
Quarter: 2023Q1

REPORT INFORMATION
  Report Type: Report from Study
  Country: CN (occurrence: CN)
  Receive Date: 20230106
  Receipt Date: 20230125
  Transmission Date: 20230417
  Serious: Yes (Life-Threatening, Other)
  Sender: FDA-Public Use
  Company Number: CN-FOSUNKITE-FOSUNKITE-20220712

PATIENT
  Age: 57 Year
  Sex: Male

DRUGS (45)
  1. AXICABTAGENE CILOLEUCEL [Suspect]
     Active Substance: AXICABTAGENE CILOLEUCEL
     Indication: Follicular lymphoma
     Dosage: 68 ML, SINGLE
     Route: 042
     Dates: start: 20221125, end: 20221125
  2. FLUDARABINE [Concomitant]
     Active Substance: FLUDARABINE PHOSPHATE
     Indication: Lymphodepletion
     Dosage: 60 MG, QD
     Route: 042
     Dates: start: 20221120, end: 20221122
  3. CYCLOPHOSPHAMIDE [Concomitant]
     Active Substance: CYCLOPHOSPHAMIDE
     Indication: Lymphodepletion
     Dosage: 1000 MG, QD
     Route: 042
     Dates: start: 20221120, end: 20221122
  4. ESTAZOLAM [Concomitant]
     Active Substance: ESTAZOLAM
     Indication: Insomnia
     Dosage: 1 MG, QD
     Route: 048
     Dates: start: 20221117, end: 20221221
  5. LACTULOSE [Concomitant]
     Active Substance: LACTULOSE
     Indication: Constipation
     Dosage: 200 MG, FRACTIONAL APPLICATION
     Route: 048
     Dates: start: 20221122
  6. TINIDAZOLE [Concomitant]
     Active Substance: TINIDAZOLE
     Indication: Infection prophylaxis
     Dosage: 200 ML, FRACTIONAL APPLICATION
     Route: 002
     Dates: start: 20221122
  7. TINIDAZOLE [Concomitant]
     Active Substance: TINIDAZOLE
     Indication: White blood cell count decreased
  8. LEVETIRACETAM [Concomitant]
     Active Substance: LEVETIRACETAM
     Indication: Prophylaxis
     Dosage: 0.75 G, BID
     Route: 048
     Dates: start: 20221125, end: 20221221
  9. LEVOFLOXACIN [Concomitant]
     Active Substance: LEVOFLOXACIN
     Indication: Infection prophylaxis
     Dosage: 100 ML, QD
     Route: 042
     Dates: start: 20221127, end: 20221206
  10. LEVOFLOXACIN [Concomitant]
     Active Substance: LEVOFLOXACIN
     Indication: White blood cell count decreased
     Dosage: 100 ML, WITH NACL
     Dates: start: 20221220, end: 20221221
  11. LEVOFLOXACIN [Concomitant]
     Active Substance: LEVOFLOXACIN
     Dosage: 100 ML WITH NACL
     Route: 042
     Dates: start: 20221222, end: 20221222
  12. METFORMIN HYDROCHLORIDE [Concomitant]
     Active Substance: METFORMIN HYDROCHLORIDE
     Indication: Type 2 diabetes mellitus
     Dosage: 0.5 G, BID
     Route: 048
     Dates: start: 20221127, end: 20221221
  13. VORICONAZOLE [Concomitant]
     Active Substance: VORICONAZOLE
     Indication: Infection prophylaxis
     Dosage: 0.3 G, QD
     Route: 042
     Dates: start: 20221129, end: 20221215
  14. VORICONAZOLE [Concomitant]
     Active Substance: VORICONAZOLE
     Indication: White blood cell count decreased
     Dosage: 400 MG AND 300 MG QD
     Route: 048
     Dates: start: 20221222, end: 20221222
  15. MEROPENEM [Concomitant]
     Active Substance: MEROPENEM
     Indication: Infection prophylaxis
     Dosage: 1 G, QD
     Route: 042
     Dates: start: 20221206, end: 20221208
  16. MEROPENEM [Concomitant]
     Active Substance: MEROPENEM
     Indication: White blood cell count decreased
  17. POTASSIUM CHLORIDE [Concomitant]
     Active Substance: POTASSIUM CHLORIDE
     Indication: Hypokalaemia
     Dosage: 5 ML, QD
     Route: 042
     Dates: start: 20221207, end: 20221209
  18. POTASSIUM CHLORIDE [Concomitant]
     Active Substance: POTASSIUM CHLORIDE
     Dosage: 15 ML, BID
     Route: 042
     Dates: start: 20221210, end: 20221216
  19. CEFOPERAZONE SODIUM\SULBACTAM SODIUM [Concomitant]
     Active Substance: CEFOPERAZONE SODIUM\SULBACTAM SODIUM
     Indication: Infection prophylaxis
     Dosage: 50 UG, QD
     Route: 023
     Dates: start: 20221209, end: 20221209
  20. CEFOPERAZONE SODIUM\SULBACTAM SODIUM [Concomitant]
     Active Substance: CEFOPERAZONE SODIUM\SULBACTAM SODIUM
     Indication: White blood cell count decreased
     Dosage: 3 G, Q8H
     Route: 042
     Dates: start: 20221209, end: 20221215
  21. CARBOHYDRATES\FATTY ACIDS\MINERALS\PROTEIN\VITAMINS [Concomitant]
     Active Substance: CARBOHYDRATES\FATTY ACIDS\MINERALS\PROTEIN\VITAMINS
     Indication: Nutritional supplementation
     Dosage: 400 G, FRACTIONAL APPLICATION
     Route: 048
     Dates: start: 20221208
  22. AMBROXOL HYDROCHLORIDE [Concomitant]
     Active Substance: AMBROXOL HYDROCHLORIDE
     Indication: Upper respiratory tract infection
     Dosage: 15 MG, BID
     Route: 042
     Dates: start: 20221208, end: 20221221
  23. AMBROXOL HYDROCHLORIDE [Concomitant]
     Active Substance: AMBROXOL HYDROCHLORIDE
     Indication: Productive cough
  24. POTASSIUM CITRATE [Concomitant]
     Active Substance: POTASSIUM CITRATE
     Indication: Hypokalaemia
     Dosage: 2.92 G, QD
     Route: 048
     Dates: start: 20221209, end: 20221209
  25. POTASSIUM CITRATE [Concomitant]
     Active Substance: POTASSIUM CITRATE
     Dosage: 2.92 G, BID
     Route: 048
     Dates: start: 20221226, end: 20221226
  26. INDOMETHACIN [Concomitant]
     Active Substance: INDOMETHACIN
     Indication: Pyrexia
     Dosage: 0.05 G, QD
     Route: 054
     Dates: start: 20221209, end: 20221209
  27. CALCIUM GLUCONATE [Concomitant]
     Active Substance: CALCIUM GLUCONATE
     Indication: Hypokalaemia
     Dosage: 10 ML, QD
     Route: 042
     Dates: start: 20221210, end: 20221210
  28. ACETAMINOPHEN [Concomitant]
     Active Substance: ACETAMINOPHEN
     Indication: Pyrexia
     Dosage: 1 TABLET, QD
     Route: 048
     Dates: start: 20221210, end: 20221210
  29. DEXAMETHASONE SODIUM PHOSPHATE [Concomitant]
     Active Substance: DEXAMETHASONE SODIUM PHOSPHATE
     Indication: Pyrexia
     Dosage: 10 MG, QD
     Route: 042
     Dates: start: 20221210, end: 20221211
  30. DEXAMETHASONE SODIUM PHOSPHATE [Concomitant]
     Active Substance: DEXAMETHASONE SODIUM PHOSPHATE
     Indication: Prophylaxis
  31. OMEPRAZOLE SODIUM [Concomitant]
     Active Substance: OMEPRAZOLE SODIUM
     Indication: Dyspepsia
     Dosage: 40 MG, QD
     Route: 042
     Dates: start: 20221211, end: 20221211
  32. OMEPRAZOLE SODIUM [Concomitant]
     Active Substance: OMEPRAZOLE SODIUM
     Indication: Prophylaxis
     Dosage: 40 MG QD
     Route: 042
     Dates: start: 20221222, end: 20221222
  33. GLYCYRRHIZIN [Concomitant]
     Active Substance: GLYCYRRHIZIN
     Indication: Hepatic function abnormal
     Dosage: 200 MG, QD
     Route: 042
     Dates: start: 20221214, end: 20221219
  34. ACYCLOVIR [Concomitant]
     Active Substance: ACYCLOVIR
     Indication: Antiviral prophylaxis
     Dosage: 0.4 G, Q12H
     Route: 048
     Dates: start: 20221216, end: 20221221
  35. ACYCLOVIR [Concomitant]
     Active Substance: ACYCLOVIR
     Dosage: 0.4 G, Q12H
     Route: 048
     Dates: start: 20221222
  36. SULFAMETHOXAZOLE [Concomitant]
     Active Substance: SULFAMETHOXAZOLE
     Indication: Antiviral prophylaxis
     Dosage: 1 TABLET, 2/WEEK, 2/TIME, 2/DAY
     Route: 048
     Dates: start: 20221215, end: 20221221
  37. SULFAMETHOXAZOLE [Concomitant]
     Active Substance: SULFAMETHOXAZOLE
     Dosage: 1 TABLET, 2/WEEK, 2/TIME, 2/DAY
     Route: 048
     Dates: start: 20221222
  38. SIMETHICONE (DIMETHICONE) [Concomitant]
     Active Substance: DIMETHICONE
     Indication: Infection prophylaxis
     Dosage: 2 ML, TID
     Route: 048
     Dates: start: 20221215
  39. SIMETHICONE (DIMETHICONE) [Concomitant]
     Active Substance: DIMETHICONE
     Indication: White blood cell count decreased
  40. COMPOUND DIGESTIVE ENZYME CAPSULES (II) [Concomitant]
     Indication: Constipation
     Dosage: 2 CAPSULE, TID
     Route: 048
     Dates: start: 20221215, end: 20221218
  41. SODIUM BICARBONATE [Concomitant]
     Active Substance: SODIUM BICARBONATE
     Indication: Blood alkalinisation therapy
     Dosage: 2 G, BIW, MONDAY, THURSDAY
     Route: 048
     Dates: start: 20221216, end: 20221221
  42. SODIUM BICARBONATE [Concomitant]
     Active Substance: SODIUM BICARBONATE
     Dosage: 2 G, BIW, MONDAY, THURSDAY
     Route: 048
     Dates: start: 20221222, end: 20221222
  43. DIETARY SUPPLEMENT [Concomitant]
     Active Substance: DIETARY SUPPLEMENT
     Indication: Constipation
     Dosage: 2 CAPSULE, TID
     Route: 048
     Dates: start: 20221215, end: 20221218
  44. MAGNESIUM ISOGLYCYRRHIZINATE [Concomitant]
     Active Substance: MAGNESIUM ISOGLYCYRRHIZINATE
     Indication: Hepatic function abnormal
     Dosage: 200 MG, QD
     Route: 042
     Dates: start: 20221214, end: 20221219
  45. ETHAMSYLATE [Concomitant]
     Active Substance: ETHAMSYLATE
     Indication: Prophylaxis
     Dosage: 1 G
     Route: 042
     Dates: start: 20221225

REACTIONS (1)
  - Pneumonia [Not Recovered/Not Resolved]

NARRATIVE: CASE EVENT DATE: 20221217
